FAERS Safety Report 9692822 (Version 1)
Quarter: 2013Q4

REPORT INFORMATION
  Report Type: Spontaneous
  Country: US (occurrence: None)
  Receive Date: 20131115
  Receipt Date: 20131115
  Transmission Date: 20140711
  Serious: No
  Sender: FDA-Public Use
  Company Number: None

PATIENT
  Age: 71 Year
  Sex: Male
  Weight: 110.5 kg

DRUGS (1)
  1. LATANOPROST [Suspect]
     Indication: GLAUCOMA
     Dosage: 0.005% DROPS
     Route: 047
     Dates: start: 20121002, end: 20121015

REACTIONS (5)
  - Drug intolerance [None]
  - Eye pain [None]
  - Ocular hyperaemia [None]
  - Ocular discomfort [None]
  - Eye irritation [None]
